FAERS Safety Report 8378495-0 (Version None)
Quarter: 2012Q2

REPORT INFORMATION
  Report Type: 
  Country: None (occurrence: None)
  Receive Date: 20120522
  Receipt Date: 20120514
  Transmission Date: 20120825
  Serious: Yes (Other)
  Sender: FDA-Public Use
  Company Number: US-JNJFOC-20090500474

PATIENT
  Sex: Male

DRUGS (3)
  1. ZYPREXA [Suspect]
     Indication: BIPOLAR DISORDER
     Route: 065
     Dates: start: 20030501, end: 20041001
  2. RISPERDAL [Suspect]
     Indication: BIPOLAR DISORDER
     Route: 065
     Dates: start: 19960101, end: 20030801
  3. SEROQUEL [Suspect]
     Indication: ILL-DEFINED DISORDER
     Route: 065

REACTIONS (1)
  - TYPE 2 DIABETES MELLITUS [None]
